FAERS Safety Report 9238710 (Version 1)
Quarter: 2013Q2

REPORT INFORMATION
  Report Type: Spontaneous
  Country: US (occurrence: US)
  Receive Date: 20130418
  Receipt Date: 20130418
  Transmission Date: 20140414
  Serious: Yes (Life-Threatening, Other)
  Sender: FDA-Public Use
  Company Number: US-ELI_LILLY_AND_COMPANY-US201304002554

PATIENT
  Sex: Male

DRUGS (2)
  1. CYMBALTA [Suspect]
     Indication: INTERVERTEBRAL DISC PROTRUSION
     Dosage: 30 MG, QD
     Dates: start: 20130408
  2. DEXLANSOPRAZOLE [Concomitant]
     Indication: GASTROOESOPHAGEAL REFLUX DISEASE

REACTIONS (5)
  - Dyspnoea [Unknown]
  - Swollen tongue [Unknown]
  - Hypersensitivity [Unknown]
  - Disturbance in attention [Unknown]
  - Confusional state [Unknown]
